FAERS Safety Report 19229250 (Version 2)
Quarter: 2021Q3

REPORT INFORMATION
  Report Type: Spontaneous
  Country: US (occurrence: US)
  Receive Date: 20210506
  Receipt Date: 20210721
  Transmission Date: 20211014
  Serious: No
  Sender: FDA-Public Use
  Company Number: US-SA-2021SA146395

PATIENT
  Age: 62 Year
  Sex: Female

DRUGS (7)
  1. VITAMIN D NOS [Concomitant]
     Active Substance: VITAMIN D NOS
     Dosage: 25MG
  2. LOSARTAN. [Concomitant]
     Active Substance: LOSARTAN
     Dosage: 25MG
  3. SYMBICORT [Concomitant]
     Active Substance: BUDESONIDE\FORMOTEROL FUMARATE DIHYDRATE
  4. PREDNISONE. [Concomitant]
     Active Substance: PREDNISONE
     Dosage: 10MG
  5. SPRYCEL [Concomitant]
     Active Substance: DASATINIB
     Dosage: 100MG
  6. DUPIXENT [Suspect]
     Active Substance: DUPILUMAB
     Indication: ASTHMA
     Dosage: 300 MG, QW
     Route: 058
     Dates: start: 20210325
  7. DUPIXENT [Suspect]
     Active Substance: DUPILUMAB
     Indication: SINUSITIS

REACTIONS (3)
  - Product use in unapproved indication [Unknown]
  - Product use issue [Unknown]
  - Injection site rash [Unknown]

NARRATIVE: CASE EVENT DATE: 20210325
